FAERS Safety Report 4992589-9 (Version None)
Quarter: 2006Q1

REPORT INFORMATION
  Report Type: 
  Country: None (occurrence: None)
  Receive Date: 20060313
  Receipt Date: 20051121
  Transmission Date: 20060701
  Serious: No
  Sender: FDA-Public Use
  Company Number: 2005-BP-14631BP

PATIENT
  Age: 65 Year
  Sex: Female

DRUGS (14)
  1. SPIRIVA [Suspect]
     Indication: CHRONIC OBSTRUCTIVE PULMONARY DISEASE
     Dosage: 18 MCG(18 MCG,1 IN 1 D),IH
     Dates: start: 20050101
  2. SPIRIVA [Suspect]
  3. VERAPAMIL [Concomitant]
  4. SINGULAIR [Concomitant]
  5. PROTONIX [Concomitant]
  6. ALLEGRA [Concomitant]
  7. CYMBALTA [Concomitant]
  8. ASPIRIN [Concomitant]
  9. CELEBREX [Concomitant]
  10. FLEXERIL [Concomitant]
  11. XOPENEX [Concomitant]
  12. FUROSEMIDE [Concomitant]
  13. POTASSIUM CHLORIDE [Concomitant]
  14. FLOVENT [Concomitant]

REACTIONS (2)
  - DRUG INEFFECTIVE [None]
  - DYSPNOEA [None]
